FAERS Safety Report 5375571-1 (Version None)
Quarter: 2007Q2

REPORT INFORMATION
  Report Type: 
  Country: None (occurrence: None)
  Receive Date: 20070627
  Receipt Date: 20070601
  Transmission Date: 20071010
  Serious: No
  Sender: FDA-Public Use
  Company Number: 2007US000675

PATIENT
  Sex: Female
  Weight: 55 kg

DRUGS (3)
  1. PROTOPIC [Suspect]
     Indication: EAR DISORDER
     Dosage: TOPICAL
     Route: 061
     Dates: start: 20060101, end: 20060101
  2. LEXOTAN (BROMAZEPAM) [Concomitant]
  3. PONDERA (PAROXETINE HYDROCHLORIDE) [Concomitant]

REACTIONS (1)
  - HERPES ZOSTER [None]
